FAERS Safety Report 8322163-8 (Version None)
Quarter: 2012Q2

REPORT INFORMATION
  Report Type: 
  Country: None (occurrence: None)
  Receive Date: 20120430
  Receipt Date: 20120417
  Transmission Date: 20120825
  Serious: Yes (Hospitalization, Other)
  Sender: FDA-Public Use
  Company Number: US-ROCHE-1060424

PATIENT
  Age: 76 Year
  Sex: Male
  Weight: 90 kg

DRUGS (2)
  1. SUNITINIB MALATE [Suspect]
     Indication: METASTATIC RENAL CELL CARCINOMA
     Dosage: LAST DATE PRIOR TO SAE 01-APR-2012
     Dates: start: 20120123
  2. AVASTIN [Suspect]
     Indication: METASTATIC RENAL CELL CARCINOMA
     Dosage: 5MG/KG IV OVER 90-30 MIN ON DAYS 1, 15 AND 29, LAST DATE PRIOR TO SAE 19-MAR-2012
     Route: 042
     Dates: start: 20120123

REACTIONS (2)
  - PLATELET COUNT DECREASED [None]
  - HAEMOLYTIC URAEMIC SYNDROME [None]
